FAERS Safety Report 9258917 (Version 2)
Quarter: 2013Q2

REPORT INFORMATION
  Report Type: Spontaneous
  Country: BE (occurrence: BE)
  Receive Date: 20130426
  Receipt Date: 20130528
  Transmission Date: 20140414
  Serious: Yes (Hospitalization)
  Sender: FDA-Public Use
  Company Number: BE-TEVA-399733ISR

PATIENT
  Age: 76 Year
  Sex: Male
  Weight: 53 kg

DRUGS (6)
  1. DOXORUBICIN NOS [Suspect]
     Indication: B-CELL LYMPHOMA
     Dosage: 81 MILLIGRAM DAILY; LAST DOSE PRIOR TO SAE: 25-AUG-2011 (81MG)
     Route: 042
     Dates: start: 20110825
  2. VINCRISTINE [Suspect]
     Indication: B-CELL LYMPHOMA
     Dosage: 2 MILLIGRAM DAILY; LAST DOSE PRIOR TO SAE: 25-AUG-2011 (2MG)
     Route: 042
     Dates: start: 20110825
  3. PREDNISONE [Suspect]
     Indication: B-CELL LYMPHOMA
     Dosage: 100 MILLIGRAM DAILY; LAST DOSE PRIOR TO SAE: 29-AUG-2011 (100MG)
     Route: 048
     Dates: start: 20110825
  4. CYCLOPHOSPHAMIDE [Suspect]
     Indication: B-CELL LYMPHOMA
     Dosage: 1215 MILLIGRAM DAILY; LAST DOSE PRIOR TO SAE: 25-AUG-2011 (1215MG)
     Route: 042
     Dates: start: 20110825
  5. RITUXIMAB [Suspect]
     Indication: B-CELL LYMPHOMA
     Dosage: 608 MILLIGRAM DAILY; NEXT DOSE DELAYED. LAST DOSE PRIOR TO SAE: 25-AUG-2011 (608MG)
     Route: 042
     Dates: start: 20110825
  6. PEGFILGRASTIM [Suspect]
     Indication: B-CELL LYMPHOMA
     Dosage: 6 MILLIGRAM DAILY; LAST DOSE PRIOR TO SAE: 26-AUG-2011 (6MG)
     Route: 058
     Dates: start: 20110826

REACTIONS (2)
  - Small intestinal obstruction [Recovered/Resolved]
  - Abdominal pain [Unknown]
